FAERS Safety Report 22962142 (Version 3)
Quarter: 2024Q1

REPORT INFORMATION
  Report Type: Spontaneous
  Country: US (occurrence: US)
  Receive Date: 20230920
  Receipt Date: 20240104
  Transmission Date: 20240410
  Serious: No
  Sender: FDA-Public Use
  Company Number: US-BRISTOL-MYERS SQUIBB COMPANY-2023-133545

PATIENT
  Age: 56 Year
  Sex: Female

DRUGS (2)
  1. SPRYCEL [Suspect]
     Active Substance: DASATINIB
     Indication: Chronic myeloid leukaemia
     Route: 048
  2. SPRYCEL [Suspect]
     Active Substance: DASATINIB
     Route: 048
     Dates: start: 202309

REACTIONS (13)
  - Chest pain [Unknown]
  - Hypotension [Unknown]
  - Vision blurred [Unknown]
  - Dry eye [Unknown]
  - Diarrhoea [Unknown]
  - Nausea [Unknown]
  - Arthralgia [Unknown]
  - Bronchitis [Unknown]
  - Headache [Unknown]
  - Dry mouth [Unknown]
  - Nasal dryness [Unknown]
  - Back injury [Unknown]
  - Liver function test abnormal [Unknown]
